FAERS Safety Report 4536929-3 (Version None)
Quarter: 2004Q4

REPORT INFORMATION
  Report Type: 
  Country: None (occurrence: None)
  Receive Date: 20041220
  Receipt Date: 20041214
  Transmission Date: 20050328
  Serious: Yes (Other)
  Sender: FDA-Public Use
  Company Number: 2004-11-1492

PATIENT
  Age: 81 Year
  Sex: Female

DRUGS (3)
  1. NASONEX [Suspect]
     Indication: RHINITIS
     Dosage: 2PUFF/NARE QD NASAL SPRA
     Dates: start: 20041020, end: 20041116
  2. VIBROCIL [Concomitant]
  3. CHROMOGLICATE SODIUM [Concomitant]

REACTIONS (3)
  - ANOSMIA [None]
  - HYPOGEUSIA [None]
  - TREATMENT NONCOMPLIANCE [None]
